FAERS Safety Report 5859506-0 (Version None)
Quarter: 2008Q3

REPORT INFORMATION
  Report Type: 
  Country: None (occurrence: None)
  Receive Date: 20080827
  Receipt Date: 20080821
  Transmission Date: 20090109
  Serious: Yes (Hospitalization, Other)
  Sender: FDA-Public Use
  Company Number: A0728173A

PATIENT
  Age: 65 Year
  Sex: Female
  Weight: 95.5 kg

DRUGS (3)
  1. AVANDIA [Suspect]
     Dosage: 4MG PER DAY
     Dates: start: 20060201, end: 20070504
  2. GLUCOPHAGE [Concomitant]
     Dates: start: 20060101
  3. METFORMIN HCL [Concomitant]
     Dates: start: 20060201

REACTIONS (8)
  - ANXIETY [None]
  - CARDIAC DISORDER [None]
  - HEART INJURY [None]
  - HYPERLIPIDAEMIA [None]
  - LIFE EXPECTANCY SHORTENED [None]
  - MYOCARDIAL INFARCTION [None]
  - PAIN [None]
  - WEIGHT INCREASED [None]
